FAERS Safety Report 14681678 (Version 1)
Quarter: 2018Q1

REPORT INFORMATION
  Report Type: Spontaneous
  Country: GB (occurrence: GB)
  Receive Date: 20180326
  Receipt Date: 20180326
  Transmission Date: 20180509
  Serious: Yes (Other)
  Sender: FDA-Public Use
  Company Number: GB-PFIZER INC-2018117811

PATIENT
  Age: 81 Year
  Sex: Female

DRUGS (1)
  1. GENOTROPIN [Suspect]
     Active Substance: SOMATROPIN
     Indication: GROWTH HORMONE DEFICIENCY
     Dosage: 0.2 MG, EVERY 3RD DAY AS DIRECTED
     Route: 058
     Dates: start: 20171011

REACTIONS (2)
  - Musculoskeletal disorder [Unknown]
  - Eye disorder [Unknown]
